FAERS Safety Report 20803394 (Version 1)
Quarter: 2022Q2

REPORT INFORMATION
  Report Type: Spontaneous
  Country: US (occurrence: US)
  Receive Date: 20220509
  Receipt Date: 20220509
  Transmission Date: 20220721
  Serious: No
  Sender: FDA-Public Use
  Company Number: US-PFIZER INC-202101607089

PATIENT
  Age: 50 Year
  Sex: Female
  Weight: 52.16 kg

DRUGS (1)
  1. VENLAFAXINE HCL [Suspect]
     Active Substance: VENLAFAXINE HYDROCHLORIDE
     Indication: Anxiety
     Dosage: 75 MG, 1X/DAY
     Route: 048

REACTIONS (2)
  - Abdominal discomfort [Unknown]
  - Nausea [Unknown]
